FAERS Safety Report 20784677 (Version 5)
Quarter: 2024Q2

REPORT INFORMATION
  Report Type: Spontaneous
  Country: US (occurrence: US)
  Receive Date: 20220504
  Receipt Date: 20240430
  Transmission Date: 20240715
  Serious: No
  Sender: FDA-Public Use
  Company Number: US-PFIZER INC-202200494168

PATIENT
  Age: 63 Year
  Sex: Male

DRUGS (3)
  1. INLYTA [Suspect]
     Active Substance: AXITINIB
     Dosage: UNK
     Dates: start: 20220207, end: 202203
  2. INLYTA [Suspect]
     Active Substance: AXITINIB
     Dosage: 5 MG, 2X/DAY
     Dates: end: 2022
  3. INLYTA [Suspect]
     Active Substance: AXITINIB
     Dosage: 2.5 MG, 2X/DAY (1/2 TABLET TWICE A DAY)
     Dates: start: 202211

REACTIONS (4)
  - Hepatic enzyme increased [Unknown]
  - Skin exfoliation [Recovering/Resolving]
  - Wrong technique in product usage process [Unknown]
  - Palmar-plantar erythrodysaesthesia syndrome [Recovered/Resolved]

NARRATIVE: CASE EVENT DATE: 20220101
